FAERS Safety Report 7762087-8 (Version None)
Quarter: 2011Q3

REPORT INFORMATION
  Report Type: 
  Country: None (occurrence: None)
  Receive Date: 20110920
  Receipt Date: 20110920
  Transmission Date: 20111222
  Serious: Yes (Death, Hospitalization, Other)
  Sender: FDA-Public Use
  Company Number: None

PATIENT
  Sex: Female

DRUGS (2)
  1. AMLODIPINE [Concomitant]
     Indication: HYPERTENSION
     Dosage: 1 PILL
     Dates: start: 20100601, end: 20100705
  2. SIMVASTATIN [Suspect]
     Indication: HYPERTENSION
     Dosage: 1 PILL
     Dates: start: 20100101, end: 20101107

REACTIONS (3)
  - LOSS OF CONSCIOUSNESS [None]
  - BLOOD PRESSURE DECREASED [None]
  - DRUG INTERACTION [None]
